FAERS Safety Report 12164929 (Version 1)
Quarter: 2016Q1

REPORT INFORMATION
  Report Type: Report from Study
  Country: US (occurrence: US)
  Receive Date: 20160309
  Receipt Date: 20160309
  Transmission Date: 20160526
  Serious: No
  Sender: FDA-Public Use
  Company Number: US-ABBVIE-15P-163-1495606-00

PATIENT
  Age: 40 Year
  Sex: Female

DRUGS (4)
  1. NORETHINDRONE ACETATE. [Suspect]
     Active Substance: NORETHINDRONE ACETATE
     Indication: PRODUCT USED FOR UNKNOWN INDICATION
     Dosage: DAILY
     Route: 048
     Dates: start: 201506
  2. NEXIUM [Concomitant]
     Active Substance: ESOMEPRAZOLE MAGNESIUM
     Indication: OESOPHAGEAL ULCER
     Dosage: DAILY
     Route: 048
  3. NEXIUM [Concomitant]
     Active Substance: ESOMEPRAZOLE MAGNESIUM
     Indication: HELICOBACTER INFECTION
  4. LUPRON DEPOT [Suspect]
     Active Substance: LEUPROLIDE ACETATE
     Indication: ENDOMETRIOSIS
     Route: 050
     Dates: start: 20121001, end: 20150601

REACTIONS (8)
  - Hot flush [Not Recovered/Not Resolved]
  - Bone loss [Not Recovered/Not Resolved]
  - Depressed mood [Recovered/Resolved]
  - Inappropriate schedule of drug administration [Recovered/Resolved]
  - Menorrhagia [Recovered/Resolved]
  - Depression [Not Recovered/Not Resolved]
  - Pelvic pain [Not Recovered/Not Resolved]
  - Crying [Recovered/Resolved]

NARRATIVE: CASE EVENT DATE: 201301
